FAERS Safety Report 5164465-2 (Version None)
Quarter: 2006Q4

REPORT INFORMATION
  Report Type: 
  Country: None (occurrence: None)
  Receive Date: 20061205
  Receipt Date: 20060302
  Transmission Date: 20070319
  Serious: Yes (Hospitalization)
  Sender: FDA-Public Use
  Company Number: US-ELI_LILLY_AND_COMPANY-US200603003494

PATIENT
  Age: 54 Year
  Sex: Female
  Weight: 108.84 kg

DRUGS (6)
  1. QUETIAPINE FUMARATE [Concomitant]
     Dates: start: 20040101, end: 20040701
  2. RISPERIDONE [Concomitant]
     Dates: start: 20050901, end: 20051001
  3. CITALOPRAM HYDROBROMIDE [Concomitant]
     Dates: start: 20040101
  4. MAXZIDE [Concomitant]
     Dates: start: 19840101
  5. PREDNISONE TAB [Concomitant]
     Dates: start: 20050701
  6. ZYPREXA [Suspect]
     Dosage: 10 MG, UNK
     Dates: start: 20010503, end: 20040108

REACTIONS (11)
  - BILIARY TRACT DISORDER [None]
  - BLOOD CHOLESTEROL INCREASED [None]
  - BLOOD TRIGLYCERIDES INCREASED [None]
  - CHOLECYSTECTOMY [None]
  - DIABETES MELLITUS [None]
  - HYPERTENSION [None]
  - HYPOGLYCAEMIA [None]
  - OBESITY [None]
  - PANCREATITIS [None]
  - VISION BLURRED [None]
  - WEIGHT DECREASED [None]
